FAERS Safety Report 6832755-0 (Version None)
Quarter: 2010Q3

REPORT INFORMATION
  Report Type: 
  Country: None (occurrence: None)
  Receive Date: 20100712
  Receipt Date: 20070515
  Transmission Date: 20110219
  Serious: No
  Sender: FDA-Public Use
  Company Number: US-PFIZER INC-2007023264

PATIENT
  Sex: Female
  Weight: 51.26 kg

DRUGS (5)
  1. CHANTIX [Suspect]
     Dates: start: 20070313
  2. PREVACID [Concomitant]
  3. LIPITOR [Concomitant]
  4. CIPROFLOXACIN [Concomitant]
     Indication: URINARY TRACT INFECTION
  5. CALCIUM [Concomitant]

REACTIONS (4)
  - FLATULENCE [None]
  - MALAISE [None]
  - NAUSEA [None]
  - VOMITING [None]
